FAERS Safety Report 4325077-3 (Version None)
Quarter: 2004Q1

REPORT INFORMATION
  Report Type: 
  Country: None (occurrence: None)
  Receive Date: 20040323
  Receipt Date: 20040315
  Transmission Date: 20041129
  Serious: Yes (Life-Threatening, Hospitalization)
  Sender: FDA-Public Use
  Company Number: 2003154191FR

PATIENT
  Age: 60 Year
  Sex: Male

DRUGS (10)
  1. ALDACTONE [Suspect]
     Indication: ESSENTIAL HYPERTENSION
     Dosage: 75 MG, QD, ORAL
     Route: 048
  2. RIMIFON [Suspect]
     Indication: TUBERCULOSIS
     Dosage: 150 MG, QD, ORAL
     Route: 048
     Dates: start: 20020901
  3. RIFAFIDINE (RIFAMPICIN) [Suspect]
     Indication: TUBERCULOSIS
     Dosage: 600 MG, DAILY, ORAL
     Route: 048
     Dates: start: 20020901, end: 20030325
  4. DEXAMBUTOL (ETHAMBUTOL HYDROCHLORIDE) [Suspect]
     Indication: TUBERCULOSIS
     Dosage: 1000 MG, DAILY, ORAL
     Route: 048
     Dates: start: 20020901, end: 20030225
  5. PROPRANOLOL [Suspect]
     Indication: ESSENTIAL HYPERTENSION
     Dosage: 40 MG, QD, ORAL
     Route: 048
  6. CORTANCYL [Concomitant]
  7. DUPHALAC [Concomitant]
  8. VITAMIN B1 AND B6 [Concomitant]
  9. PHYTONADIONE [Concomitant]
  10. INSULIN [Concomitant]

REACTIONS (3)
  - ASCITES [None]
  - DRUG INEFFECTIVE [None]
  - THROMBOCYTOPENIC PURPURA [None]
